FAERS Safety Report 6156279-1 (Version None)
Quarter: 2009Q2

REPORT INFORMATION
  Report Type: 
  Country: None (occurrence: None)
  Receive Date: 20090415
  Receipt Date: 20090408
  Transmission Date: 20091009
  Serious: Yes (Hospitalization)
  Sender: FDA-Public Use
  Company Number: US-SANOFI-SYNTHELABO-D01200600629

PATIENT
  Sex: Female
  Weight: 69.9 kg

DRUGS (17)
  1. ZOCOR [Concomitant]
     Indication: HYPERLIPIDAEMIA
     Dosage: 40 MG
     Route: 065
     Dates: start: 20050912
  2. RAMIPRIL [Concomitant]
     Indication: HYPERTENSION
     Dosage: 1.25 MG
     Route: 065
     Dates: start: 20050912
  3. RETIN-A [Concomitant]
     Dosage: UNK
     Route: 061
     Dates: start: 20050812
  4. TRAMADOL [Concomitant]
     Indication: ARTHRITIS
     Dosage: 50 MG
     Route: 065
     Dates: start: 20040202
  5. ADVAIR HFA [Concomitant]
     Indication: CHRONIC OBSTRUCTIVE PULMONARY DISEASE
     Route: 055
     Dates: start: 20011105
  6. TYLENOL [Concomitant]
     Indication: ARTHRITIS
     Dosage: 325 MG
     Route: 065
     Dates: start: 20050102
  7. CLARITIN [Concomitant]
     Indication: HYPERSENSITIVITY
     Dosage: 325 MG
     Route: 065
     Dates: start: 20050412
  8. ATENOLOL [Concomitant]
     Indication: HYPERTENSION
     Dosage: 150 MG
     Route: 065
     Dates: start: 19980813
  9. ADALAT [Concomitant]
     Indication: HYPERTENSION
     Dosage: 30 MG
     Route: 065
     Dates: start: 20030227
  10. ACIPHEX [Concomitant]
     Indication: GASTROOESOPHAGEAL REFLUX DISEASE
     Dosage: 20 MG
     Route: 065
     Dates: start: 20030304
  11. ALBUTEROL [Concomitant]
     Indication: CHRONIC OBSTRUCTIVE PULMONARY DISEASE
     Dosage: 2 UNIT
     Route: 055
     Dates: start: 19980910
  12. ATROVENT [Concomitant]
     Indication: CHRONIC OBSTRUCTIVE PULMONARY DISEASE
     Dosage: 2 UNK
     Route: 055
     Dates: start: 19990923
  13. AMBIEN [Concomitant]
     Indication: SLEEP DISORDER
     Dosage: 5 MG
     Route: 065
     Dates: start: 20021021
  14. QUININE [Concomitant]
     Indication: MUSCLE SPASMS
     Dosage: 325 MG
     Route: 065
     Dates: start: 20040817
  15. LASIX [Concomitant]
     Indication: CARDIAC FAILURE CONGESTIVE
     Route: 065
     Dates: start: 19980803
  16. ASPIRIN [Concomitant]
     Indication: ATRIAL FIBRILLATION
     Dosage: 81 MG
     Route: 048
     Dates: start: 20001102
  17. CLOPIDOGREL [Suspect]
     Indication: ATRIAL FIBRILLATION
     Route: 048
     Dates: start: 20050810

REACTIONS (1)
  - PANCREATIC INSUFFICIENCY [None]
